FAERS Safety Report 25643081 (Version 1)
Quarter: 2025Q3

REPORT INFORMATION
  Report Type: Spontaneous
  Country: EU (occurrence: EU)
  Receive Date: 20250805
  Receipt Date: 20250805
  Transmission Date: 20251021
  Serious: Yes (Other)
  Sender: ASTELLAS
  Company Number: EU-IPSEN Group, Research and Development-2025-17977

PATIENT
  Age: 62 Year
  Sex: Male

DRUGS (6)
  1. ENZALUTAMIDE [Suspect]
     Active Substance: ENZALUTAMIDE
     Indication: Prostate cancer
     Route: 050
     Dates: start: 202209
  2. TRIPTORELIN PAMOATE [Suspect]
     Active Substance: TRIPTORELIN PAMOATE
     Indication: Prostate cancer
     Route: 050
     Dates: start: 202209, end: 202308
  3. BICALUTAMIDE [Suspect]
     Active Substance: BICALUTAMIDE
     Indication: Prostate cancer
     Route: 050
     Dates: start: 202209
  4. DOCETAXEL [Concomitant]
     Active Substance: DOCETAXEL
     Indication: Prostate cancer
     Route: 050
     Dates: start: 202308
  5. ABIRATERONE/ PREDNISOLONE [Concomitant]
     Indication: Prostate cancer
     Route: 050
     Dates: start: 202401
  6. ABIRATERONE/ PREDNISOLONE+ LYNPARZA [Concomitant]
     Indication: Prostate cancer
     Route: 050
     Dates: start: 202505

REACTIONS (1)
  - Prostate cancer [Unknown]

NARRATIVE: CASE EVENT DATE: 20230701
